FAERS Safety Report 7862078-2 (Version None)
Quarter: 2011Q4

REPORT INFORMATION
  Report Type: 
  Country: None (occurrence: None)
  Receive Date: 20111027
  Receipt Date: 20101108
  Transmission Date: 20120403
  Serious: No
  Sender: FDA-Public Use
  Company Number: US-AMGEN-USASP2010009576

PATIENT
  Age: 57 Year
  Sex: Female
  Weight: 95.238 kg

DRUGS (4)
  1. HUMIRA [Concomitant]
     Indication: RHEUMATOID ARTHRITIS
     Dosage: 40 MG, Q2WK
     Dates: start: 20100501
  2. PREDNISONE [Concomitant]
     Indication: RHEUMATOID ARTHRITIS
  3. DICLOFENAC SODIUM [Concomitant]
     Indication: PAIN
  4. ENBREL [Suspect]
     Indication: PRODUCT USED FOR UNKNOWN INDICATION
     Dosage: UNK

REACTIONS (2)
  - THERAPEUTIC RESPONSE DECREASED [None]
  - INJECTION SITE PAIN [None]
